FAERS Safety Report 15164935 (Version 1)
Quarter: 2018Q4

REPORT INFORMATION
  Report Type: Spontaneous
  Country: US (occurrence: US)
  Receive Date: 20180719
  Receipt Date: 20180719
  Transmission Date: 20190204
  Serious: No
  Sender: FDA-Public Use
  Company Number: US-RICON PHARMA, LLC-RIC201804-000351

PATIENT
  Sex: Male

DRUGS (3)
  1. CHLORTHALIDONE 25 MG TABLETS [Suspect]
     Active Substance: CHLORTHALIDONE
     Indication: HYPERTENSION
     Dates: start: 20180301
  2. BYSTOLIC [Concomitant]
     Active Substance: NEBIVOLOL HYDROCHLORIDE
  3. BENICAR [Concomitant]
     Active Substance: OLMESARTAN MEDOXOMIL

REACTIONS (1)
  - Wrong technique in product usage process [Unknown]

NARRATIVE: CASE EVENT DATE: 20180301
